FAERS Safety Report 8858897 (Version 7)
Quarter: 2013Q3

REPORT INFORMATION
  Report Type: Report from Study
  Country: US (occurrence: US)
  Receive Date: 20121024
  Receipt Date: 20130822
  Transmission Date: 20140515
  Serious: Yes (Hospitalization)
  Sender: FDA-Public Use
  Company Number: US-ACTELION-A-NJ2012-72979

PATIENT
  Age: 68 Year
  Sex: Female

DRUGS (9)
  1. TRACLEER [Suspect]
     Indication: PULMONARY ARTERIAL HYPERTENSION
     Dosage: 125 MG, BID
     Route: 048
     Dates: start: 2011, end: 201306
  2. TRACLEER [Suspect]
     Dosage: UNK
     Route: 048
     Dates: start: 2011, end: 2012
  3. PRADAXA [Concomitant]
  4. TRAZODONE [Concomitant]
     Dosage: 150 MG, QD
     Dates: start: 2012
  5. COUMADIN [Concomitant]
     Dosage: 5 MG, QD
     Dates: start: 2010
  6. TORSEMIDE [Concomitant]
     Dosage: 60 MG, QD
     Dates: start: 2012
  7. NEURONTIN [Concomitant]
     Dosage: 200 MG, QD
     Dates: start: 2010
  8. REGLAN [Concomitant]
     Dosage: 10 MG, TID
     Dates: start: 2010
  9. CYMBALTA [Concomitant]
     Dosage: 30 MG, QD
     Dates: start: 2012

REACTIONS (18)
  - Hepatic failure [Not Recovered/Not Resolved]
  - Cholelithiasis [Not Recovered/Not Resolved]
  - Gastric ulcer [Recovered/Resolved]
  - Dehydration [Unknown]
  - Cardiac failure congestive [Recovering/Resolving]
  - Local swelling [Recovering/Resolving]
  - Concomitant disease aggravated [Recovering/Resolving]
  - Clostridium difficile infection [Recovering/Resolving]
  - Vomiting [Recovering/Resolving]
  - Diarrhoea [Recovering/Resolving]
  - Blood sodium decreased [Recovering/Resolving]
  - Cardiomyopathy [Unknown]
  - Cardiac failure [Recovering/Resolving]
  - Activities of daily living impaired [Unknown]
  - Sleep disorder [Unknown]
  - Weight decreased [Recovering/Resolving]
  - Urinary tract infection [Recovered/Resolved]
  - Fatigue [Recovering/Resolving]
